FAERS Safety Report 4804014-9 (Version None)
Quarter: 2005Q4

REPORT INFORMATION
  Report Type: 
  Country: None (occurrence: None)
  Receive Date: 20051014
  Receipt Date: 20040809
  Transmission Date: 20060501
  Serious: Yes (Other)
  Sender: FDA-Public Use
  Company Number: PHEH2004US06600

PATIENT
  Age: 46 Year
  Sex: Male
  Weight: 114.7 kg

DRUGS (4)
  1. METOPROLOL TARTRATE [Suspect]
     Indication: HYPERTENSION
     Dosage: 50 MG, BID
  2. HYZAAR [Suspect]
  3. MINOXIDIL [Suspect]
  4. ADALAT [Suspect]

REACTIONS (2)
  - BLOOD PRESSURE INCREASED [None]
  - INCORRECT DOSE ADMINISTERED [None]
